FAERS Safety Report 13690307 (Version 2)
Quarter: 2017Q3

REPORT INFORMATION
  Report Type: Spontaneous
  Country: DE (occurrence: DE)
  Receive Date: 20170626
  Receipt Date: 20170827
  Transmission Date: 20171127
  Serious: Yes (Hospitalization, Other)
  Sender: FDA-Public Use
  Company Number: DE-MYLANLABS-2017M1037600

PATIENT

DRUGS (9)
  1. MARCUMAR [Concomitant]
     Active Substance: PHENPROCOUMON
     Indication: ATRIAL FIBRILLATION
     Dosage: NACH INR
     Route: 048
  2. ALLOPURINOL. [Concomitant]
     Active Substance: ALLOPURINOL
     Indication: HYPERURICAEMIA
     Dosage: DAILY DOSE: 1 DF DOSAGE FORM EVERY DAYS
     Route: 048
     Dates: end: 20170509
  3. NOVALGIN [Concomitant]
     Active Substance: METAMIZOLE SODIUM
     Indication: PAIN
     Dosage: DAILY DOSE: 4 DF DOSAGE FORM EVERY DAYS
     Route: 048
     Dates: end: 20170509
  4. TILIDIN [Concomitant]
     Active Substance: NALOXONE HYDROCHLORIDE\TILIDINE HYDROCHLORIDE
     Indication: PAIN
     Dosage: DAILY DOSE: 2 DF DOSAGE FORM EVERY DAYS
     Route: 048
     Dates: end: 20170509
  5. FENISTIL [Suspect]
     Active Substance: DIMETHINDENE
     Indication: PAIN
     Dosage: BIS ZU 5 X/D BEI BEDARF
     Route: 048
     Dates: start: 20170509, end: 20170529
  6. MOVICOL [Suspect]
     Active Substance: POLYETHYLENE GLYCOL 3350\POTASSIUM CHLORIDE\SODIUM BICARBONATE\SODIUM CHLORIDE
     Indication: PRODUCT USED FOR UNKNOWN INDICATION
     Dosage: DAILY DOSE: 1 DF DOSAGE FORM EVERY DAYS
     Route: 048
     Dates: end: 20170529
  7. HYDROMORPHONE [Concomitant]
     Active Substance: HYDROMORPHONE
     Indication: PAIN
     Dosage: DAILY DOSE: 8 MG MILLGRAM(S) EVERY DAYS
     Route: 048
     Dates: start: 20170509, end: 20170529
  8. REVLIMID [Concomitant]
     Active Substance: LENALIDOMIDE
     Indication: PLASMA CELL MYELOMA
     Dates: start: 20170522, end: 20170522
  9. FUROSEMIDE. [Suspect]
     Active Substance: FUROSEMIDE
     Indication: CARDIAC FAILURE
     Route: 048
     Dates: end: 20170529

REACTIONS (3)
  - Erythema multiforme [Recovering/Resolving]
  - Dermatitis exfoliative [Recovering/Resolving]
  - Lichenification [Recovering/Resolving]

NARRATIVE: CASE EVENT DATE: 20170514
